FAERS Safety Report 10593432 (Version 1)
Quarter: 2014Q4

REPORT INFORMATION
  Report Type: Spontaneous
  Country: FR (occurrence: FR)
  Receive Date: 20141119
  Receipt Date: 20141119
  Transmission Date: 20150529
  Serious: Yes (Death, Other)
  Sender: FDA-Public Use
  Company Number: FR-SA-2014SA156832

PATIENT
  Age: 85 Year
  Sex: Female

DRUGS (9)
  1. PREDNISONE. [Suspect]
     Active Substance: PREDNISONE
     Route: 048
  2. BISOCE [Interacting]
     Active Substance: BISOPROLOL
     Route: 048
     Dates: start: 201406
  3. SEROPLEX [Interacting]
     Active Substance: ESCITALOPRAM OXALATE
     Route: 048
     Dates: start: 20140701
  4. INEXIUM [Concomitant]
     Active Substance: ESOMEPRAZOLE
     Dosage: STRENGTH: 40MG
     Route: 048
  5. LERCAN [Concomitant]
     Active Substance: LERCANIDIPINE
     Indication: HYPERTENSION
     Dosage: STRENGTH: 10MG
     Route: 048
  6. LASILIX [Interacting]
     Active Substance: FUROSEMIDE
     Route: 048
     Dates: start: 201406
  7. CORDARONE [Interacting]
     Active Substance: AMIODARONE HYDROCHLORIDE
     Indication: ARRHYTHMIA
     Route: 048
     Dates: start: 201404
  8. CO OLMETEC [Interacting]
     Active Substance: HYDROCHLOROTHIAZIDE\OLMESARTAN MEDOXOMIL
     Indication: HYPERTENSION
     Route: 048
  9. PREVISCAN [Interacting]
     Active Substance: FLUINDIONE
     Route: 048
     Dates: start: 201406

REACTIONS (6)
  - Ventricular fibrillation [Fatal]
  - Acute kidney injury [Unknown]
  - International normalised ratio increased [Recovered/Resolved]
  - Hyponatraemia [Unknown]
  - Torsade de pointes [Fatal]
  - Hypokalaemia [Recovered/Resolved]

NARRATIVE: CASE EVENT DATE: 20140704
